FAERS Safety Report 24191244 (Version 2)
Quarter: 2024Q3

REPORT INFORMATION
  Report Type: Spontaneous
  Country: IT (occurrence: IT)
  Receive Date: 20240808
  Receipt Date: 20240822
  Transmission Date: 20241017
  Serious: Yes (Hospitalization)
  Sender: TEVA
  Company Number: IT-TEVA-VS-3229166

PATIENT
  Sex: Male

DRUGS (6)
  1. PREDNISONE [Suspect]
     Active Substance: PREDNISONE
     Indication: Prophylaxis against transplant rejection
     Route: 065
  2. TACROLIMUS [Suspect]
     Active Substance: TACROLIMUS
     Indication: Prophylaxis against transplant rejection
     Dosage: PROLONGED RELEASE
     Route: 065
  3. MYCOPHENOLIC ACID [Concomitant]
     Active Substance: MYCOPHENOLIC ACID
     Indication: Kidney transplant rejection
     Route: 065
  4. MESALAMINE [Suspect]
     Active Substance: MESALAMINE
     Indication: Crohn^s disease
     Route: 065
     Dates: start: 1997, end: 2017
  5. AZATHIOPRINE [Suspect]
     Active Substance: AZATHIOPRINE
     Indication: Prophylaxis against transplant rejection
     Route: 065
     Dates: start: 1997
  6. AZATHIOPRINE [Suspect]
     Active Substance: AZATHIOPRINE
     Indication: Prophylaxis against transplant rejection
     Route: 065

REACTIONS (3)
  - Drug ineffective [Unknown]
  - Acute kidney injury [Unknown]
  - Abdominal discomfort [Unknown]

NARRATIVE: CASE EVENT DATE: 20170101
